FAERS Safety Report 16178487 (Version 1)
Quarter: 2019Q2

REPORT INFORMATION
  Report Type: Spontaneous
  Country: US (occurrence: US)
  Receive Date: 20190306
  Receipt Date: 20190306
  Transmission Date: 20190711
  Serious: Yes (Death)
  Sender: FDA-Public Use
  Company Number: None

PATIENT
  Age: 70 Year
  Sex: Female

DRUGS (9)
  1. ARIPIPRAZOLE. [Concomitant]
     Active Substance: ARIPIPRAZOLE
  2. NOVOLOG [Concomitant]
     Active Substance: INSULIN ASPART
  3. ESBRIET [Suspect]
     Active Substance: PIRFENIDONE
     Indication: IDIOPATHIC PULMONARY FIBROSIS
     Route: 048
     Dates: start: 20171118
  4. GABAPENTIN. [Concomitant]
     Active Substance: GABAPENTIN
  5. PROLIA [Concomitant]
     Active Substance: DENOSUMAB
  6. BUPROPN HCL [Concomitant]
     Active Substance: BUPROPION HYDROCHLORIDE
  7. FLUXETINE [Concomitant]
  8. CALTRATE [Concomitant]
     Active Substance: CALCIUM CARBONATE
  9. VITAMIN D3 [Concomitant]
     Active Substance: CHOLECALCIFEROL

REACTIONS (1)
  - Death [None]

NARRATIVE: CASE EVENT DATE: 20181128
